FAERS Safety Report 13503726 (Version 2)
Quarter: 2017Q2

REPORT INFORMATION
  Report Type: Spontaneous
  Country: DE (occurrence: DE)
  Receive Date: 20170502
  Receipt Date: 20170523
  Transmission Date: 20170830
  Serious: Yes (Death, Hospitalization)
  Sender: FDA-Public Use
  Company Number: DE-ACTELION-A-CH2017-152897

PATIENT
  Age: 71 Year
  Sex: Female

DRUGS (10)
  1. FERRO SANOL [Concomitant]
     Active Substance: FERROUS GLYCINE SULFATE
  2. TORASEMIDE [Concomitant]
     Active Substance: TORSEMIDE
  3. RIVAROXABAN [Concomitant]
     Active Substance: RIVAROXABAN
     Dosage: 20 MG, QD
  4. INDAPAMIDE. [Concomitant]
     Active Substance: INDAPAMIDE
  5. PANTOPRAZOLE [Concomitant]
     Active Substance: PANTOPRAZOLE
  6. SPIRONOLACTONE. [Concomitant]
     Active Substance: SPIRONOLACTONE
  7. VIGANTOLETTEN [Concomitant]
     Active Substance: CHOLECALCIFEROL
  8. OPSUMIT [Suspect]
     Active Substance: MACITENTAN
     Indication: PULMONARY HYPERTENSION
     Dosage: 10 MG, UNK
     Route: 048
  9. SILDENAFIL. [Concomitant]
     Active Substance: SILDENAFIL
  10. ALENDRONATE [Concomitant]
     Active Substance: ALENDRONATE SODIUM
     Dosage: 70 MG, UNK

REACTIONS (7)
  - Dyspnoea [Fatal]
  - Pleural effusion [Fatal]
  - Acute kidney injury [Fatal]
  - Nausea [Fatal]
  - Abdominal pain upper [Fatal]
  - Cor pulmonale [Fatal]
  - Vomiting [Fatal]
